FAERS Safety Report 8836265 (Version 1)
Quarter: 2012Q4

REPORT INFORMATION
  Report Type: 
  Country: FR (occurrence: FR)
  Receive Date: 20121011
  Receipt Date: 20121011
  Transmission Date: 20130627
  Serious: Yes (Hospitalization, Other)
  Sender: FDA-Public Use
  Company Number: FR-ASTRAZENECA-2012SE76232

PATIENT
  Age: 24706 Day
  Sex: Female

DRUGS (6)
  1. XEROQUEL [Suspect]
     Indication: BIPOLAR DISORDER
     Route: 048
     Dates: start: 20120907, end: 20120913
  2. STILNOX [Suspect]
     Route: 048
     Dates: end: 20120913
  3. ENDOTELON [Suspect]
     Route: 048
     Dates: end: 20120913
  4. INIPOMP [Suspect]
     Route: 048
     Dates: end: 20120913
  5. TRANXENE [Concomitant]
     Route: 048
  6. PROZAC [Concomitant]
     Route: 048

REACTIONS (10)
  - Confusional state [Recovered/Resolved]
  - Malaise [Recovered/Resolved]
  - Fall [Recovered/Resolved]
  - Toxicity to various agents [Recovered/Resolved]
  - Alcohol poisoning [Recovered/Resolved]
  - Hot flush [Recovered/Resolved]
  - Psychomotor retardation [Recovered/Resolved]
  - Dysarthria [Recovered/Resolved]
  - Hypotension [Recovered/Resolved]
  - Dizziness [Recovered/Resolved]
